FAERS Safety Report 4600748-X (Version None)
Quarter: 2005Q1

REPORT INFORMATION
  Report Type: 
  Country: None (occurrence: None)
  Receive Date: 20050307
  Receipt Date: 20050302
  Transmission Date: 20050727
  Serious: Yes (Life-Threatening)
  Sender: FDA-Public Use
  Company Number: US-MERCK-0503USA00308

PATIENT
  Age: 55 Year
  Sex: Female

DRUGS (8)
  1. VIOXX [Suspect]
     Indication: OSTEOARTHRITIS
     Route: 048
     Dates: start: 19990101, end: 20040930
  2. AMITRIPTYLIN [Concomitant]
     Route: 065
  3. NEXIUM [Concomitant]
     Route: 065
  4. FLEXERIL [Concomitant]
     Route: 065
  5. PEPCID [Concomitant]
     Route: 065
  6. CLARITIN [Concomitant]
     Route: 065
  7. NASONEX [Concomitant]
     Route: 065
  8. DARVOCET-N 100 [Concomitant]
     Route: 065

REACTIONS (1)
  - CAROTID ARTERY STENOSIS [None]
